FAERS Safety Report 4371818-9 (Version None)
Quarter: 2004Q2

REPORT INFORMATION
  Report Type: 
  Country: None (occurrence: None)
  Receive Date: 20040601
  Receipt Date: 20040514
  Transmission Date: 20050107
  Serious: Yes (Death)
  Sender: FDA-Public Use
  Company Number: 2004-DE-02863GD

PATIENT
  Age: 34 Year
  Sex: Female

DRUGS (3)
  1. NEVIRAPINE (NEVIRAPINE) [Suspect]
     Indication: HIV INFECTION
  2. ABACAVIR (ABACAVIR) [Suspect]
     Indication: HIV INFECTION
  3. D4T (STAVUDINE) [Suspect]
     Indication: HIV INFECTION

REACTIONS (4)
  - HIV DISEASE PROGRESSION [None]
  - JC VIRUS INFECTION [None]
  - MENTAL STATUS CHANGES [None]
  - PROGRESSIVE MULTIFOCAL LEUKOENCEPHALOPATHY [None]
